FAERS Safety Report 23783549 (Version 4)
Quarter: 2024Q3

REPORT INFORMATION
  Report Type: Report from Study
  Country: JP (occurrence: JP)
  Receive Date: 20240425
  Receipt Date: 20240927
  Transmission Date: 20241017
  Serious: Yes (Other)
  Sender: TEVA
  Company Number: JP-OTSUKA-2024_006998

PATIENT
  Age: 45 Year
  Sex: Male

DRUGS (7)
  1. FREMANEZUMAB [Suspect]
     Active Substance: FREMANEZUMAB
     Indication: Migraine
     Dosage: 225 MG/SHOT
     Route: 058
     Dates: start: 20230413, end: 20230413
  2. FREMANEZUMAB [Suspect]
     Active Substance: FREMANEZUMAB
     Dosage: 225 MG/SHOT
     Route: 058
     Dates: start: 20230316, end: 20230316
  3. LOMERIZINE HYDROCHLORIDE [Concomitant]
     Active Substance: LOMERIZINE HYDROCHLORIDE
     Indication: Migraine
     Dosage: 20 MG/DAY
     Route: 048
     Dates: start: 20220602, end: 20230316
  4. LOXOPROFEN SODIUM [Concomitant]
     Active Substance: LOXOPROFEN SODIUM
     Indication: Headache
     Dosage: 60MG/DAY
     Route: 048
     Dates: start: 20230303, end: 20230511
  5. REYVOW [Concomitant]
     Active Substance: LASMIDITAN
     Indication: Migraine
     Dosage: 50 MG/DAY
     Route: 048
     Dates: start: 20220915, end: 20230608
  6. ORYCTOLAGUS CUNICULUS SKIN [Concomitant]
     Active Substance: ORYCTOLAGUS CUNICULUS SKIN
     Indication: Headache
     Dosage: 4 UNITS/DAY
     Route: 048
     Dates: start: 20230303, end: 20230303
  7. REBAMIPIDE [Suspect]
     Active Substance: REBAMIPIDE
     Indication: Prophylaxis
     Dosage: 100MG/DAY
     Route: 048
     Dates: start: 20230303, end: 20230303

REACTIONS (3)
  - Cerebral infarction [Recovered/Resolved]
  - Underdose [Unknown]
  - Product use in unapproved indication [Unknown]

NARRATIVE: CASE EVENT DATE: 20230303
